FAERS Safety Report 21754406 (Version 2)
Quarter: 2022Q4

REPORT INFORMATION
  Report Type: Spontaneous
  Country: FR (occurrence: FR)
  Receive Date: 20221220
  Receipt Date: 20221229
  Transmission Date: 20230113
  Serious: Yes (Death, Other)
  Sender: FDA-Public Use
  Company Number: None

PATIENT
  Age: 71 Year
  Sex: Male
  Weight: 80 kg

DRUGS (11)
  1. VORICONAZOLE [Interacting]
     Active Substance: VORICONAZOLE
     Indication: Lung disorder
     Dosage: 200 TO 800 MG/DAY
     Route: 048
     Dates: start: 20221010, end: 20221014
  2. BACTRIM [Interacting]
     Active Substance: SULFAMETHOXAZOLE\TRIMETHOPRIM
     Indication: Infection prophylaxis
     Dosage: UNK
  3. SPIRAMYCIN [Interacting]
     Active Substance: SPIRAMYCIN
     Indication: Lung disorder
     Dosage: 3 TO 9 MIU/DAY
     Route: 048
     Dates: start: 20221006, end: 20221012
  4. LEVOFLOXACIN [Interacting]
     Active Substance: LEVOFLOXACIN
     Indication: Lung disorder
     Dosage: 750 MG, 1X/DAY
     Route: 048
     Dates: start: 20221012
  5. AMIODARONE [Interacting]
     Active Substance: AMIODARONE
     Indication: Arrhythmia
     Dosage: 200 MG, 1X/DAY
     Route: 048
  6. VALACYCLOVIR HYDROCHLORIDE [Concomitant]
     Active Substance: VALACYCLOVIR HYDROCHLORIDE
     Dosage: UNK
  7. FILGRASTIM [Concomitant]
     Active Substance: FILGRASTIM
     Dosage: UNK
  8. ERYTHROPOIETIN [Concomitant]
     Active Substance: ERYTHROPOIETIN
     Dosage: UNK
  9. RIVAROXABAN [Concomitant]
     Active Substance: RIVAROXABAN
     Dosage: UNK
  10. LEUCOVORIN CALCIUM [Concomitant]
     Active Substance: LEUCOVORIN CALCIUM
     Dosage: UNK
  11. ENTRESTO [Concomitant]
     Active Substance: SACUBITRIL\VALSARTAN
     Dosage: UNK

REACTIONS (5)
  - Drug interaction [Fatal]
  - Sudden death [Fatal]
  - Cardio-respiratory arrest [Fatal]
  - Electrocardiogram QT prolonged [Unknown]
  - Off label use [Unknown]

NARRATIVE: CASE EVENT DATE: 20221001
